FAERS Safety Report 9050031 (Version 1)
Quarter: 2013Q1

REPORT INFORMATION
  Report Type: Spontaneous
  Country: US (occurrence: US)
  Receive Date: 20130205
  Receipt Date: 20130205
  Transmission Date: 20140127
  Serious: No
  Sender: FDA-Public Use
  Company Number: US-GLAXOSMITHKLINE-A0999178A

PATIENT
  Age: 62 Year
  Sex: Male

DRUGS (13)
  1. ARIXTRA [Suspect]
     Indication: THROMBOSIS
     Dosage: 10MG PER DAY
     Route: 058
     Dates: start: 201208
  2. COREG [Concomitant]
  3. LISINOPRIL [Concomitant]
  4. HYDRALAZINE [Concomitant]
  5. RANITIDINE [Concomitant]
  6. ASPIRIN [Concomitant]
  7. WELLBUTRIN [Concomitant]
  8. NITRATE [Concomitant]
  9. SIMVASTATIN [Concomitant]
  10. ISOSORBIDE [Concomitant]
  11. ALLERGY MEDICINE [Concomitant]
  12. LORATADINE [Concomitant]
  13. HEARTBURN MEDICATION [Concomitant]

REACTIONS (2)
  - Injection site haematoma [Unknown]
  - Blood pressure increased [Unknown]
